FAERS Safety Report 21472258 (Version 1)
Quarter: 2022Q4

REPORT INFORMATION
  Report Type: Spontaneous
  Country: US (occurrence: US)
  Receive Date: 20221018
  Receipt Date: 20221018
  Transmission Date: 20230112
  Serious: No
  Sender: FDA-Public Use
  Company Number: US-PFIZER INC-PV202200084486

PATIENT
  Sex: Female

DRUGS (3)
  1. IBRANCE [Suspect]
     Active Substance: PALBOCICLIB
     Indication: Breast cancer metastatic
     Dosage: UNK
  2. FASLODEX [Concomitant]
     Active Substance: FULVESTRANT
  3. XELODA [Concomitant]
     Active Substance: CAPECITABINE

REACTIONS (1)
  - Neoplasm progression [Unknown]
